APPROVED DRUG PRODUCT: METHYLPREDNISOLONE ACETATE
Active Ingredient: METHYLPREDNISOLONE ACETATE
Strength: 20MG/ML
Dosage Form/Route: INJECTABLE;INJECTION
Application: A201835 | Product #001
Applicant: SAGENT PHARMACEUTICALS INC
Approved: Jun 27, 2018 | RLD: No | RS: No | Type: DISCN